FAERS Safety Report 4753430-2 (Version None)
Quarter: 2005Q3

REPORT INFORMATION
  Report Type: 
  Country: None (occurrence: None)
  Receive Date: 20050824
  Receipt Date: 20050815
  Transmission Date: 20060218
  Serious: Yes (Other)
  Sender: FDA-Public Use
  Company Number: 2004-12-1049

PATIENT
  Age: 62 Year
  Sex: Female
  Weight: 59 kg

DRUGS (11)
  1. PEG-INTRON [Suspect]
     Indication: HEPATITIS C
     Dosage: 100 MCG QW SUBCUTANEOUS; 50 MCG QW SUBCUTANEOUS; 100 MCG QW SUBCUTANEOUS
     Route: 058
     Dates: start: 20050118, end: 20050125
  2. PEG-INTRON [Suspect]
     Indication: HEPATITIS C
     Dosage: 100 MCG QW SUBCUTANEOUS; 50 MCG QW SUBCUTANEOUS; 100 MCG QW SUBCUTANEOUS
     Route: 058
     Dates: start: 20041216, end: 20050607
  3. PEG-INTRON [Suspect]
     Indication: HEPATITIS C
     Dosage: 100 MCG QW SUBCUTANEOUS; 50 MCG QW SUBCUTANEOUS; 100 MCG QW SUBCUTANEOUS
     Route: 058
     Dates: start: 20050201, end: 20050607
  4. REBETOL [Suspect]
     Indication: HEPATITIS C
     Dosage: 600 MG ORAL
     Route: 048
     Dates: start: 20041210, end: 20041218
  5. REBETOL [Suspect]
     Indication: HEPATITIS C
     Dosage: 600 MG ORAL
     Route: 048
     Dates: start: 20050118, end: 20050607
  6. NORVASC [Concomitant]
  7. REBAMIPIDE [Concomitant]
  8. BLOPRESS (CANDESARTAN CILEXETIL) TABLETS [Concomitant]
  9. DEPAS TABLETS [Concomitant]
  10. DOGMATL TABLETS [Concomitant]
  11. ALDACTONE-A TABLETS [Concomitant]

REACTIONS (5)
  - DEPRESSIVE SYMPTOM [None]
  - DYSPNOEA [None]
  - ECZEMA [None]
  - PHARYNGEAL OEDEMA [None]
  - URTICARIA [None]
